FAERS Safety Report 23727808 (Version 1)
Quarter: 2024Q2

REPORT INFORMATION
  Report Type: Spontaneous
  Country: US (occurrence: US)
  Receive Date: 20240410
  Receipt Date: 20240410
  Transmission Date: 20240716
  Serious: Yes (Death, Hospitalization, Other)
  Sender: FDA-Public Use
  Company Number: US-AMGEN-USASP2024069960

PATIENT
  Age: 76 Year
  Sex: Female

DRUGS (1)
  1. BLINATUMOMAB [Suspect]
     Active Substance: BLINATUMOMAB
     Indication: B-cell type acute leukaemia
     Dosage: UNK (28 DAY INFUSION)
     Route: 065

REACTIONS (10)
  - Death [Fatal]
  - Leukocytosis [Unknown]
  - Mental status changes [Unknown]
  - Pneumonia [Unknown]
  - Acute lymphocytic leukaemia recurrent [Unknown]
  - Subdural haematoma [Unknown]
  - Fall [Unknown]
  - Neurotoxicity [Unknown]
  - Cytokine release syndrome [Unknown]
  - Hepatotoxicity [Unknown]
